FAERS Safety Report 20315951 (Version 3)
Quarter: 2022Q1

REPORT INFORMATION
  Report Type: Spontaneous
  Country: US (occurrence: None)
  Receive Date: 20220110
  Receipt Date: 20220203
  Transmission Date: 20220423
  Serious: Yes (Hospitalization, Other)
  Sender: FDA-Public Use
  Company Number: US-Hikma Pharmaceuticals USA Inc.-US-H14001-21-05622

PATIENT
  Age: 4 Year
  Sex: Male
  Weight: 22 kg

DRUGS (11)
  1. METHOTREXATE [Suspect]
     Active Substance: METHOTREXATE
     Indication: Acute lymphocytic leukaemia
     Route: 037
     Dates: start: 20190523
  2. METHOTREXATE [Suspect]
     Active Substance: METHOTREXATE
     Indication: Acute lymphocytic leukaemia
     Dosage: DAY 8, 15, 22, 29, 36, 43, 50
     Route: 048
     Dates: start: 20200320, end: 20210115
  3. METHOTREXATE [Suspect]
     Active Substance: METHOTREXATE
     Dosage: DAY 8, 15, 22, 29, 36, 43, 50
     Route: 048
     Dates: start: 20210202
  4. METHOTREXATE [Suspect]
     Active Substance: METHOTREXATE
     Route: 048
     Dates: start: 20210218
  5. MERCAPTOPURINE [Suspect]
     Active Substance: MERCAPTOPURINE
     Indication: Acute lymphocytic leukaemia
     Dosage: DAYS 1-84
     Route: 048
     Dates: start: 20190523, end: 20210115
  6. MERCAPTOPURINE [Suspect]
     Active Substance: MERCAPTOPURINE
     Dosage: DAYS 1-84
     Route: 048
     Dates: start: 20210211
  7. PREDNISONE [Suspect]
     Active Substance: PREDNISONE
     Indication: Acute lymphocytic leukaemia
     Route: 048
     Dates: start: 20200313
  8. RUXOLITINIB [Suspect]
     Active Substance: RUXOLITINIB
     Indication: Acute lymphocytic leukaemia
     Route: 048
     Dates: start: 20190523, end: 20210115
  9. RUXOLITINIB [Suspect]
     Active Substance: RUXOLITINIB
     Route: 048
     Dates: start: 20210211
  10. VINCRISTINE [Suspect]
     Active Substance: VINCRISTINE
     Indication: Acute lymphocytic leukaemia
     Dosage: DAYS 1,29, 57
     Route: 042
     Dates: start: 20190606
  11. CLINDAMYCIN [Concomitant]
     Active Substance: CLINDAMYCIN
     Indication: Cellulitis
     Dosage: UNKNOWN
     Route: 048
     Dates: start: 20210115, end: 20210128

REACTIONS (9)
  - Molluscum contagiosum [Recovering/Resolving]
  - Erythema [Recovering/Resolving]
  - COVID-19 [Recovering/Resolving]
  - Neutropenia [Recovering/Resolving]
  - Cellulitis [Recovered/Resolved]
  - Abscess limb [Recovered/Resolved]
  - Condition aggravated [Recovered/Resolved]
  - Skin lesion [Recovering/Resolving]
  - Pain [Recovering/Resolving]

NARRATIVE: CASE EVENT DATE: 20210115
